FAERS Safety Report 18534447 (Version 1)
Quarter: 2020Q4

REPORT INFORMATION
  Report Type: Spontaneous
  Country: DE (occurrence: DE)
  Receive Date: 20201123
  Receipt Date: 20201123
  Transmission Date: 20210114
  Serious: Yes (Death)
  Sender: FDA-Public Use
  Company Number: DE-PORTOLA PHARMACEUTICALS, INC.-2020DE000226

PATIENT

DRUGS (1)
  1. ONDEXXYA [Suspect]
     Active Substance: ANDEXANET ALFA
     Indication: PROCOAGULANT THERAPY
     Dosage: DOSAGE REGIMEN NOT PROVIDED

REACTIONS (1)
  - Haemorrhage intracranial [Fatal]
